FAERS Safety Report 8283657-7 (Version None)
Quarter: 2012Q2

REPORT INFORMATION
  Report Type: 
  Country: None (occurrence: None)
  Receive Date: 20120413
  Receipt Date: 20120404
  Transmission Date: 20120825
  Serious: Yes (Death, Hospitalization)
  Sender: FDA-Public Use
  Company Number: JP-EISAI INC-E7389-01670-SPO-JP

PATIENT
  Sex: Female
  Weight: 48 kg

DRUGS (2)
  1. HALAVEN [Suspect]
     Indication: BREAST CANCER RECURRENT
     Route: 041
     Dates: start: 20110916, end: 20111019
  2. GRANISETRON [Concomitant]
     Route: 041
     Dates: start: 20110916, end: 20111019

REACTIONS (5)
  - THROMBOCYTOPENIA [None]
  - NEUTROPENIA [None]
  - PNEUMONIA [None]
  - CANDIDA SEPSIS [None]
  - MALAISE [None]
